FAERS Safety Report 13085686 (Version 1)
Quarter: 2017Q1

REPORT INFORMATION
  Report Type: Spontaneous
  Country: US (occurrence: US)
  Receive Date: 20170103
  Receipt Date: 20170103
  Transmission Date: 20170428
  Serious: Yes (Disabling)
  Sender: FDA-Public Use
  Company Number: None

PATIENT
  Age: 32 Year
  Sex: Female
  Weight: 60.75 kg

DRUGS (7)
  1. MULTIVITAMIN [Concomitant]
     Active Substance: VITAMINS
  2. FOLIC ACID. [Concomitant]
     Active Substance: FOLIC ACID
  3. GLUCOSAMINE [Concomitant]
     Active Substance: GLUCOSAMINE
  4. CIPROFLOXACIN HCL [Suspect]
     Active Substance: CIPROFLOXACIN HYDROCHLORIDE
     Indication: URINARY TRACT INFECTION
     Dosage: ?          QUANTITY:7 TABLET(S);?
     Route: 048
     Dates: start: 20161227, end: 20161230
  5. MAGNESIUM [Concomitant]
     Active Substance: MAGNESIUM
  6. FISH OIL [Concomitant]
     Active Substance: FISH OIL
  7. BIOTIN [Concomitant]
     Active Substance: BIOTIN

REACTIONS (10)
  - Paraesthesia [None]
  - Muscular weakness [None]
  - Anxiety [None]
  - Tendon pain [None]
  - Hypoaesthesia [None]
  - Abnormal dreams [None]
  - Nausea [None]
  - Joint crepitation [None]
  - Heart rate increased [None]
  - Arthropathy [None]

NARRATIVE: CASE EVENT DATE: 20161227
